FAERS Safety Report 17976009 (Version 2)
Quarter: 2020Q3

REPORT INFORMATION
  Report Type: Spontaneous
  Country: US (occurrence: US)
  Receive Date: 20200702
  Receipt Date: 20200720
  Transmission Date: 20201103
  Serious: Yes (Hospitalization)
  Sender: FDA-Public Use
  Company Number: US-NOVOPROD-737194

PATIENT
  Age: 86 Year
  Sex: Female

DRUGS (1)
  1. NOVOLIN 70/30 [Suspect]
     Active Substance: INSULIN HUMAN
     Indication: PRODUCT USED FOR UNKNOWN INDICATION
     Dosage: UNK
     Route: 058

REACTIONS (6)
  - Gastric haemorrhage [Recovered/Resolved]
  - Diverticulum [Recovering/Resolving]
  - Haematochezia [Recovering/Resolving]
  - Diverticulum [Recovered/Resolved]
  - Haematochezia [Recovered/Resolved]
  - Gastric haemorrhage [Recovering/Resolving]
